FAERS Safety Report 16952163 (Version 1)
Quarter: 2019Q4

REPORT INFORMATION
  Report Type: Spontaneous
  Country: US (occurrence: US)
  Receive Date: 20191022
  Receipt Date: 20191022
  Transmission Date: 20200122
  Serious: Yes (Other)
  Sender: FDA-Public Use
  Company Number: None

PATIENT
  Age: 55 Year
  Sex: Female

DRUGS (11)
  1. FLUTICASONE. [Concomitant]
     Active Substance: FLUTICASONE
  2. AZELASTINE. [Concomitant]
     Active Substance: AZELASTINE HYDROCHLORIDE
  3. LEVOCETIRIZI [Concomitant]
  4. CEPHALEXIN. [Concomitant]
     Active Substance: CEPHALEXIN
  5. AMOX/K CLAV [Concomitant]
     Active Substance: AMOXICILLIN\CLAVULANATE POTASSIUM
  6. GABAPENTIN. [Concomitant]
     Active Substance: GABAPENTIN
  7. ORENCIA [Suspect]
     Active Substance: ABATACEPT
     Indication: RHEUMATOID ARTHRITIS
     Dosage: ?          OTHER FREQUENCY:ONCE EVERY WEEK;?
     Route: 058
     Dates: start: 20171010
  8. OXYCODONE [Concomitant]
     Active Substance: OXYCODONE
  9. DIAZEPAM. [Concomitant]
     Active Substance: DIAZEPAM
  10. TIZANIDINE. [Concomitant]
     Active Substance: TIZANIDINE
  11. DULOXETINE. [Concomitant]
     Active Substance: DULOXETINE

REACTIONS (1)
  - Nail operation [None]

NARRATIVE: CASE EVENT DATE: 20191012
